FAERS Safety Report 12632050 (Version 2)
Quarter: 2016Q3

REPORT INFORMATION
  Report Type: Spontaneous
  Country: US (occurrence: US)
  Receive Date: 20160808
  Receipt Date: 20160808
  Transmission Date: 20161109
  Serious: No
  Sender: FDA-Public Use
  Company Number: US-BEH-2016061797

PATIENT
  Sex: Female
  Weight: 103 kg

DRUGS (43)
  1. HIZENTRA [Suspect]
     Active Substance: HUMAN IMMUNOGLOBULIN G
     Route: 058
  2. OFLOXACIN. [Concomitant]
     Active Substance: OFLOXACIN
  3. CLEOCIN [Concomitant]
     Active Substance: CLINDAMYCIN PHOSPHATE
  4. CULTURELLE [Concomitant]
     Active Substance: LACTOBACILLUS RHAMNOSUS
  5. LEXAPRO [Concomitant]
     Active Substance: ESCITALOPRAM OXALATE
  6. HIZENTRA [Suspect]
     Active Substance: HUMAN IMMUNOGLOBULIN G
     Route: 058
  7. DIFLUCAN [Concomitant]
     Active Substance: FLUCONAZOLE
  8. NASACORT [Concomitant]
     Active Substance: TRIAMCINOLONE ACETONIDE
  9. ZOFRAN [Concomitant]
     Active Substance: ONDANSETRON HYDROCHLORIDE
  10. AZO CRANBERRY [Concomitant]
  11. FROVA [Concomitant]
     Active Substance: FROVATRIPTAN SUCCINATE
  12. HIZENTRA [Suspect]
     Active Substance: HUMAN IMMUNOGLOBULIN G
     Indication: IMMUNODEFICIENCY COMMON VARIABLE
     Route: 058
  13. ACETAMINOPHEN. [Concomitant]
     Active Substance: ACETAMINOPHEN
  14. NYSTOP [Concomitant]
     Active Substance: NYSTATIN
  15. LACTULOSE. [Concomitant]
     Active Substance: LACTULOSE
  16. POTASSIUM [Concomitant]
     Active Substance: POTASSIUM
  17. OMEPRAZOLE. [Concomitant]
     Active Substance: OMEPRAZOLE
  18. ESTRADIOL. [Concomitant]
     Active Substance: ESTRADIOL
  19. HIZENTRA [Suspect]
     Active Substance: HUMAN IMMUNOGLOBULIN G
     Route: 058
  20. EPINEPHRINE. [Concomitant]
     Active Substance: EPINEPHRINE
  21. LIDOCAINE/PRILOCAINE [Concomitant]
     Active Substance: LIDOCAINE\PRILOCAINE
  22. CREON [Concomitant]
     Active Substance: PANCRELIPASE AMYLASE\PANCRELIPASE LIPASE\PANCRELIPASE PROTEASE
  23. XIFAXAN [Concomitant]
     Active Substance: RIFAXIMIN
  24. PULMICORT TURBUHALER [Concomitant]
     Active Substance: BUDESONIDE
  25. XANAX [Concomitant]
     Active Substance: ALPRAZOLAM
  26. MELATONIN [Concomitant]
     Active Substance: MELATONIN
  27. DIPHENHYDRAMINE. [Concomitant]
     Active Substance: DIPHENHYDRAMINE
  28. MONUROL [Concomitant]
     Active Substance: FOSFOMYCIN TROMETHAMINE
  29. ATACAND [Concomitant]
     Active Substance: CANDESARTAN CILEXETIL
  30. ASPIRIN. [Concomitant]
     Active Substance: ASPIRIN
  31. ABILIFY [Concomitant]
     Active Substance: ARIPIPRAZOLE
  32. MULTIVITAMIN [Concomitant]
     Active Substance: VITAMINS
  33. SINUCLEANSE NASAL WASH [Concomitant]
  34. CALCIUM [Concomitant]
     Active Substance: CALCIUM
  35. SYNTHROID [Concomitant]
     Active Substance: LEVOTHYROXINE SODIUM
  36. PATANOL [Concomitant]
     Active Substance: OLOPATADINE HYDROCHLORIDE
  37. AMITRIPTYLINE [Concomitant]
     Active Substance: AMITRIPTYLINE
  38. CLOBETASOL [Concomitant]
     Active Substance: CLOBETASOL
  39. VITAMIN D [Concomitant]
     Active Substance: CHOLECALCIFEROL
  40. MUCINEX [Concomitant]
     Active Substance: GUAIFENESIN
  41. FISH OIL [Concomitant]
     Active Substance: FISH OIL
  42. ACIDOPHILUS [Concomitant]
     Active Substance: LACTOBACILLUS ACIDOPHILUS
  43. KETOROLAC [Concomitant]
     Active Substance: KETOROLAC\KETOROLAC TROMETHAMINE

REACTIONS (1)
  - Fungal infection [Recovered/Resolved]
